FAERS Safety Report 11797826 (Version 3)
Quarter: 2016Q1

REPORT INFORMATION
  Report Type: Spontaneous
  Country: KR (occurrence: KR)
  Receive Date: 20151203
  Receipt Date: 20160204
  Transmission Date: 20160525
  Serious: No
  Sender: FDA-Public Use
  Company Number: KR-GLAXOSMITHKLINE-KR2015GSK171498

PATIENT
  Age: 24 Year
  Sex: Female

DRUGS (1)
  1. DUAC GEL [Suspect]
     Active Substance: BENZOYL PEROXIDE\CLINDAMYCIN PHOSPHATE
     Indication: ACNE
     Dosage: UNK,QD,AT NIGHT
     Dates: start: 20151117

REACTIONS (6)
  - Product quality issue [Unknown]
  - Application site pruritus [Recovering/Resolving]
  - Miliaria [Recovered/Resolved]
  - Face oedema [Unknown]
  - Application site swelling [Unknown]
  - Rash papular [Recovered/Resolved]

NARRATIVE: CASE EVENT DATE: 201511
